FAERS Safety Report 8784504 (Version 3)
Quarter: 2013Q2

REPORT INFORMATION
  Report Type: Spontaneous
  Country: BR (occurrence: BR)
  Receive Date: 20120913
  Receipt Date: 20130425
  Transmission Date: 20140414
  Serious: Yes (Hospitalization, Other)
  Sender: FDA-Public Use
  Company Number: BR-AMGEN-BRASP2012057251

PATIENT
  Age: 45 Year
  Sex: Female
  Weight: 62 kg

DRUGS (16)
  1. ENBREL [Suspect]
     Indication: RHEUMATOID ARTHRITIS
     Dosage: 50 MG, ONCE WEEKLY
     Route: 058
     Dates: start: 201207, end: 201208
  2. FORASEQ [Concomitant]
     Indication: PULMONARY FIBROSIS
     Dosage: 400 MG, UNK
  3. MOTILIUM                           /00498201/ [Concomitant]
     Indication: PULMONARY FIBROSIS
     Dosage: 10 MG, UNK
  4. NOEX [Concomitant]
     Indication: PULMONARY FIBROSIS
     Dosage: 50 MG, UNK
  5. OMEPRAZOLE [Concomitant]
     Dosage: 20 MG, UNK
  6. DEPURA [Concomitant]
     Dosage: UNK
  7. NUTRICAL D [Concomitant]
     Dosage: UNK
  8. ARAVA [Concomitant]
     Dosage: 1 TABLET OF 20 MG, 1X/DAY
     Route: 048
  9. METHOTREXATE [Concomitant]
     Dosage: 8 CAPSULES OR TABLETS
     Route: 048
  10. METHOTREXATE [Concomitant]
     Dosage: 6 TABLETS OF 5 MG, 1X/WEEK
     Route: 048
  11. METHOTREXATE [Concomitant]
     Dosage: 6 TABLETS OF 5MG, WEEKLY
     Route: 048
  12. HYDROXYCHLOROQUINE [Concomitant]
     Dosage: UNK
  13. FOLIC ACID [Concomitant]
     Dosage: 2 TABLETS OF 5 MG, 1X/WEEK
     Route: 048
  14. PREDNISONE [Concomitant]
     Dosage: 1 TABLET OF 5 MG, 1X/DAY
     Route: 048
  15. SYMBICORT [Concomitant]
     Dosage: 400 MUG, UNK
     Route: 048
  16. SYMBICORT [Concomitant]
     Dosage: 400 UG, UNK

REACTIONS (6)
  - Pancreatitis [Unknown]
  - Lung disorder [Recovered/Resolved]
  - Cholelithiasis [Unknown]
  - Bile duct stone [Unknown]
  - Pneumonia [Recovered/Resolved]
  - Lung infection [Recovered/Resolved]
